FAERS Safety Report 7888904-9 (Version None)
Quarter: 2011Q4

REPORT INFORMATION
  Report Type: 
  Country: None (occurrence: None)
  Receive Date: 20111103
  Receipt Date: 20111101
  Transmission Date: 20120403
  Serious: Yes (Other)
  Sender: FDA-Public Use
  Company Number: US-AMGEN-USASP2011046449

PATIENT
  Age: 27 Year
  Sex: Female
  Weight: 77.098 kg

DRUGS (4)
  1. PRENATAL VITAMINS                  /01549301/ [Concomitant]
     Dosage: UNK
     Route: 058
  2. ENBREL [Suspect]
     Indication: ANKYLOSING SPONDYLITIS
     Dosage: 50 MG, QWK
     Route: 058
  3. ENBREL [Suspect]
  4. CLOMID [Concomitant]
     Dosage: UNK
     Dates: start: 20110327, end: 20110331

REACTIONS (2)
  - STILLBIRTH [None]
  - AMNIOCENTESIS ABNORMAL [None]
